FAERS Safety Report 6299200-8 (Version None)
Quarter: 2009Q3

REPORT INFORMATION
  Report Type: 
  Country: None (occurrence: None)
  Receive Date: 20090806
  Receipt Date: 20090803
  Transmission Date: 20100115
  Serious: Yes (Death)
  Sender: FDA-Public Use
  Company Number: CN-ASTRAZENECA-2009SE05976

PATIENT
  Age: 19 Year
  Sex: Female

DRUGS (3)
  1. PROPOFOL [Suspect]
     Indication: ANAESTHESIA
     Route: 042
     Dates: start: 20080407, end: 20080407
  2. OXYTOCIN [Concomitant]
     Indication: ABORTION INDUCED
     Dosage: 10 U
     Route: 042
     Dates: start: 20080407, end: 20080407
  3. OXYGEN [Concomitant]
     Route: 055
     Dates: start: 20080407

REACTIONS (3)
  - CARDIO-RESPIRATORY ARREST [None]
  - HYPOXIC ENCEPHALOPATHY [None]
  - RESPIRATORY TRACT INFECTION [None]
